FAERS Safety Report 13332997 (Version 2)
Quarter: 2017Q2

REPORT INFORMATION
  Report Type: Spontaneous
  Country: IN (occurrence: IN)
  Receive Date: 20170313
  Receipt Date: 20170515
  Transmission Date: 20170830
  Serious: Yes (Death)
  Sender: FDA-Public Use
  Company Number: IN-PFIZER INC-2017107291

PATIENT

DRUGS (1)
  1. ERAXIS [Suspect]
     Active Substance: ANIDULAFUNGIN
     Dosage: UNK

REACTIONS (1)
  - Haemorrhage [Fatal]
